FAERS Safety Report 9852785 (Version 2)
Quarter: 2014Q1

REPORT INFORMATION
  Report Type: Spontaneous
  Country: JP (occurrence: JP)
  Receive Date: 20140129
  Receipt Date: 20140129
  Transmission Date: 20141002
  Serious: Yes (Other)
  Sender: FDA-Public Use
  Company Number: PHHY2013JP153069

PATIENT
  Age: 62 Year
  Sex: Male
  Weight: 65 kg

DRUGS (6)
  1. DEFERASIROX [Suspect]
     Indication: IRON OVERLOAD
     Dosage: 20 MG/KG, DAY
     Route: 048
     Dates: start: 201107
  2. DEFERASIROX [Suspect]
     Dosage: 10 MG/KG, PER DAY
  3. CICLOSPORIN [Suspect]
     Indication: APLASTIC ANAEMIA
     Dates: start: 201005
  4. METHYLPREDNISOLONE [Suspect]
     Indication: APLASTIC ANAEMIA
     Dates: start: 201005
  5. ANTITHYMOCYTE IMMUNOGLOBULIN [Suspect]
     Indication: APLASTIC ANAEMIA
     Dosage: 3.75 MG/KG/ PER DAYFOR 5 DAYS
     Dates: start: 201005
  6. ANTITHYMOCYTE IMMUNOGLOBULIN [Suspect]
     Dosage: 2.5 MG/KG/PEAR DAY FOR 5 DAYS
     Dates: start: 201105

REACTIONS (3)
  - Renal impairment [Unknown]
  - Therapeutic response unexpected [Unknown]
  - Drug resistance [Unknown]
